FAERS Safety Report 9259254 (Version 1)
Quarter: 2013Q2

REPORT INFORMATION
  Report Type: Spontaneous
  Country: DE (occurrence: DE)
  Receive Date: 20130426
  Receipt Date: 20130426
  Transmission Date: 20140414
  Serious: Yes (Life-Threatening)
  Sender: FDA-Public Use
  Company Number: DE-ASTRAZENECA-2013SE28620

PATIENT
  Age: 3985 Week
  Sex: Male
  Weight: 74 kg

DRUGS (8)
  1. BRILIQUE [Suspect]
     Route: 048
     Dates: start: 20130203, end: 20130225
  2. RAMIPRIL [Suspect]
     Route: 048
     Dates: end: 20130225
  3. SIMVASTATIN [Suspect]
     Route: 048
     Dates: start: 20130203
  4. TORASEMID [Suspect]
     Route: 048
     Dates: start: 20130203
  5. ALLOPURINOL [Suspect]
     Route: 048
     Dates: start: 20130203
  6. PANTOZOL [Concomitant]
     Route: 048
     Dates: start: 20130203
  7. BISOPROLOL [Concomitant]
     Route: 048
     Dates: start: 20130203
  8. ASS [Concomitant]
     Route: 048
     Dates: start: 20130203

REACTIONS (1)
  - Pancreatitis [Recovered/Resolved]
